FAERS Safety Report 6685424-4 (Version None)
Quarter: 2010Q2

REPORT INFORMATION
  Report Type: 
  Country: None (occurrence: None)
  Receive Date: 20100418
  Receipt Date: 20100407
  Transmission Date: 20101027
  Serious: Yes (Hospitalization)
  Sender: FDA-Public Use
  Company Number: FR-BRISTOL-MYERS SQUIBB COMPANY-15057490

PATIENT
  Age: 60 Year
  Sex: Male

DRUGS (2)
  1. CARBIDOPA + LEVODOPA [Suspect]
     Indication: PARKINSON'S DISEASE
     Route: 048
     Dates: start: 20050101, end: 20091201
  2. PARLODEL [Suspect]
     Indication: PARKINSON'S DISEASE
     Dosage: TABLET
     Route: 048
     Dates: start: 20050101, end: 20091201

REACTIONS (4)
  - OEDEMA PERIPHERAL [None]
  - PULMONARY EMBOLISM [None]
  - RENAL FAILURE [None]
  - RETROPERITONEAL FIBROSIS [None]
